FAERS Safety Report 23909805 (Version 1)
Quarter: 2024Q2

REPORT INFORMATION
  Report Type: Spontaneous
  Country: FR (occurrence: FR)
  Receive Date: 20240528
  Receipt Date: 20240528
  Transmission Date: 20240716
  Serious: Yes (Other)
  Sender: FDA-Public Use
  Company Number: None

PATIENT
  Age: 10 Year
  Sex: Female
  Weight: 31 kg

DRUGS (1)
  1. ELEXACAFTOR\IVACAFTOR\TEZACAFTOR [Suspect]
     Active Substance: ELEXACAFTOR\IVACAFTOR\TEZACAFTOR
     Indication: Cystic fibrosis
     Dosage: 37.5 MG IVA/25 MG TEZA/50 MG ELEXA; TWO TABS ONCE A DAY
     Route: 048
     Dates: start: 202303

REACTIONS (1)
  - Initial insomnia [Recovering/Resolving]

NARRATIVE: CASE EVENT DATE: 20230601
